APPROVED DRUG PRODUCT: ISOSORBIDE MONONITRATE
Active Ingredient: ISOSORBIDE MONONITRATE
Strength: 120MG
Dosage Form/Route: TABLET, EXTENDED RELEASE;ORAL
Application: A090598 | Product #003
Applicant: STRIDES PHARMA INTERNATIONAL AG
Approved: Aug 11, 2010 | RLD: No | RS: No | Type: DISCN